FAERS Safety Report 8049101-X (Version None)
Quarter: 2012Q1

REPORT INFORMATION
  Report Type: 
  Country: None (occurrence: None)
  Receive Date: 20120117
  Receipt Date: 20120109
  Transmission Date: 20120608
  Serious: Yes (Hospitalization, Other)
  Sender: FDA-Public Use
  Company Number: US-BAYER-2011-075119

PATIENT
  Age: 37 Year
  Sex: Female
  Weight: 65.306 kg

DRUGS (19)
  1. ZOFRAN [Concomitant]
     Indication: NAUSEA
     Dosage: 4 MG, UNK
     Route: 042
  2. ABILIFY [Concomitant]
     Indication: BIPOLAR DISORDER
     Dosage: 5 MG, QD
     Route: 048
     Dates: end: 20091209
  3. ASPIRIN [Concomitant]
     Indication: PAIN
  4. ASPIRIN [Concomitant]
     Dosage: 81 MG, QD
     Route: 048
     Dates: start: 20091210
  5. YAZ [Suspect]
     Indication: CONTRACEPTION
     Dosage: UNK
     Dates: start: 20070101, end: 20090101
  6. NITROGLYCERIN [Concomitant]
     Indication: VASODILATION PROCEDURE
     Dosage: 1 UNK, UNK
     Route: 062
  7. TORADOL [Concomitant]
     Indication: PAIN
     Dosage: 30 MG, UNK
     Route: 042
  8. ZOLOFT [Concomitant]
     Indication: ANTIDEPRESSANT THERAPY
     Dosage: 100 MG, QD
     Route: 048
     Dates: end: 20091209
  9. MAXIDEX [Concomitant]
     Indication: HYPERTENSION
     Dosage: 12.5 MG, QD
     Route: 048
     Dates: end: 20091209
  10. LYRICA [Concomitant]
     Indication: FIBROMYALGIA
     Dosage: 100 MG, TID
     Route: 048
     Dates: end: 20091209
  11. PROTONIX [Concomitant]
     Indication: ABDOMINAL DISCOMFORT
     Dosage: 40 MG, QD
     Route: 048
  12. DICYCLOMINE HCL [Concomitant]
     Indication: IRRITABLE BOWEL SYNDROME
  13. VICODIN ES [Concomitant]
     Indication: PAIN
     Dosage: 1 U, UNK
     Route: 048
     Dates: end: 20091209
  14. IBUPROFEN [Concomitant]
     Indication: PAIN
     Dosage: 800 MG, PRN
     Route: 048
     Dates: end: 20091209
  15. KLONOPIN [Concomitant]
     Indication: ANXIETY DISORDER
  16. DICYCLOMINE HCL [Concomitant]
     Indication: ANTICHOLINERGIC SYNDROME
     Dosage: 10 MG, PRN
     Route: 048
     Dates: end: 20091209
  17. NITROGLYCERIN [Concomitant]
     Indication: VASODILATION PROCEDURE
     Dosage: 1 U, UNK
     Route: 060
  18. MORPHINE [Concomitant]
     Indication: PAIN
     Dosage: 2 MG, UNK
     Route: 042
  19. KLONOPIN [Concomitant]
     Indication: PANIC DISORDER
     Dosage: 1 MG, TID
     Route: 048
     Dates: end: 20091209

REACTIONS (5)
  - CEREBROVASCULAR ACCIDENT [None]
  - PAIN [None]
  - INJURY [None]
  - CHOLELITHIASIS [None]
  - GALLBLADDER INJURY [None]
